FAERS Safety Report 7412320-7 (Version None)
Quarter: 2011Q2

REPORT INFORMATION
  Report Type: 
  Country: None (occurrence: None)
  Receive Date: 20110413
  Receipt Date: 20110401
  Transmission Date: 20111010
  Serious: Yes (Other)
  Sender: FDA-Public Use
  Company Number: DE-ROCHE-770618

PATIENT
  Sex: Female

DRUGS (2)
  1. BONIVA [Suspect]
     Indication: OSTEOPOROSIS
     Dosage: RECEIVED FOR ONE YEAR.
     Route: 065
  2. ACLASTA [Suspect]
     Indication: OSTEOPOROSIS
     Dosage: RECEIVED AFTER BONVIVA THERAPY.
     Route: 065

REACTIONS (1)
  - NEOPLASM [None]
